FAERS Safety Report 8248580-2 (Version None)
Quarter: 2012Q1

REPORT INFORMATION
  Report Type: 
  Country: None (occurrence: None)
  Receive Date: 20120330
  Receipt Date: 20120322
  Transmission Date: 20120608
  Serious: Yes (Other)
  Sender: FDA-Public Use
  Company Number: IT-ASTRAZENECA-2012SE19635

PATIENT
  Age: 11133 Day
  Sex: Female

DRUGS (2)
  1. DEPAKENE [Concomitant]
     Indication: BIPOLAR DISORDER
  2. QUETIAPINE [Suspect]
     Indication: BIPOLAR DISORDER
     Route: 048
     Dates: start: 20120125

REACTIONS (2)
  - HEPATITIS [None]
  - JAUNDICE [None]
